FAERS Safety Report 9763636 (Version 1)
Quarter: 2013Q4

REPORT INFORMATION
  Report Type: Spontaneous
  Country: US (occurrence: US)
  Receive Date: 20131216
  Receipt Date: 20131216
  Transmission Date: 20140711
  Serious: No
  Sender: FDA-Public Use
  Company Number: US-BIOGENIDEC-2013BI108364

PATIENT
  Age: 54 Year
  Sex: Male

DRUGS (8)
  1. TECFIDERA [Suspect]
     Indication: MULTIPLE SCLEROSIS
     Route: 048
     Dates: start: 201310
  2. TECFIDERA [Suspect]
     Indication: MULTIPLE SCLEROSIS
     Route: 048
     Dates: start: 20131001
  3. NIFEDIPINE [Concomitant]
  4. ASPIRIN LOW DOSE [Concomitant]
  5. WELLBUTRIN [Concomitant]
  6. SUDAFED [Concomitant]
  7. PROVIGIL [Concomitant]
  8. CIALIS [Concomitant]

REACTIONS (4)
  - Paraesthesia [Not Recovered/Not Resolved]
  - Flushing [Not Recovered/Not Resolved]
  - Abdominal pain upper [Not Recovered/Not Resolved]
  - Nausea [Not Recovered/Not Resolved]
